FAERS Safety Report 25255637 (Version 1)
Quarter: 2025Q2

REPORT INFORMATION
  Report Type: Spontaneous
  Country: DE (occurrence: DE)
  Receive Date: 20250430
  Receipt Date: 20250430
  Transmission Date: 20250717
  Serious: Yes (Other)
  Sender: ASCEND THERAPEUTICS US, LLC
  Company Number: DE-Ascend Therapeutics US, LLC-2175840

PATIENT
  Age: 38 Year
  Sex: Male

DRUGS (6)
  1. ANDROGEL [Suspect]
     Active Substance: TESTOSTERONE
     Indication: Blood testosterone decreased
     Dates: start: 202504, end: 202504
  2. TESTOSTERONE [Suspect]
     Active Substance: TESTOSTERONE
     Dates: start: 202504, end: 202504
  3. ESCITALOPRAM [Concomitant]
     Active Substance: ESCITALOPRAM OXALATE
     Dates: start: 2024
  4. ESCITALOPRAM [Concomitant]
     Active Substance: ESCITALOPRAM OXALATE
     Dates: start: 2024, end: 2024
  5. ESCITALOPRAM [Concomitant]
     Active Substance: ESCITALOPRAM OXALATE
  6. TESTOSTERONE [Suspect]
     Active Substance: TESTOSTERONE
     Dates: start: 202504

REACTIONS (5)
  - Suicidal ideation [Unknown]
  - Product prescribing issue [Unknown]
  - Product prescribing error [Unknown]
  - Therapeutic response decreased [Unknown]
  - Depression [Unknown]

NARRATIVE: CASE EVENT DATE: 20250401
